FAERS Safety Report 23148042 (Version 1)
Quarter: 2023Q4

REPORT INFORMATION
  Report Type: Spontaneous
  Country: ES (occurrence: ES)
  Receive Date: 20231106
  Receipt Date: 20231106
  Transmission Date: 20240110
  Serious: Yes (Other)
  Sender: FDA-Public Use
  Company Number: None

PATIENT
  Age: 89 Year
  Sex: Female

DRUGS (6)
  1. BISOPROLOL [Suspect]
     Active Substance: BISOPROLOL\BISOPROLOL FUMARATE
     Indication: Atrial fibrillation
     Dosage: 5 MG PER DAY UNTIL 09/11, 10 MG PER DAY FROM 09/11 TO 09/13, BISOPROLOL 2.5 MG TABLET
     Route: 065
     Dates: start: 20230905, end: 20230913
  2. DEFLAZACORT [Concomitant]
     Active Substance: DEFLAZACORT
     Indication: Polymyalgia rheumatica
     Dosage: 3 MILLIGRAM DAILY; DEFLAZACORT 6 MG TABLET, 3 MG A DAY
     Route: 065
     Dates: start: 20220221
  3. GABAPENTIN [Concomitant]
     Active Substance: GABAPENTIN
     Indication: Agitation
     Dosage: 400 MILLIGRAM DAILY; 400 MG A DAY, GABAPENTIN 100 MG CAPSULE
     Route: 065
     Dates: start: 20220510, end: 20230911
  4. SIMVASTATIN [Concomitant]
     Active Substance: SIMVASTATIN
     Indication: Dyslipidaemia
     Dosage: 20 MILLIGRAM DAILY; 20 MG /24H, SIMVASTATIN 20 MG TABLET
     Route: 065
     Dates: start: 20110315
  5. LEVOTHYROXINE [Concomitant]
     Active Substance: LEVOTHYROXINE
     Indication: Hypothyroidism
     Dosage: 150 MICROGRAM DAILY; LEVOTHYROXINE 150 MICROGRAMS TABLET, 150 MCG A DAY
     Route: 065
     Dates: start: 20211005
  6. TIAPRIDE [Concomitant]
     Active Substance: TIAPRIDE
     Indication: Agitation
     Dosage: 50 MILLIGRAM DAILY; TIAPRIDE 100 MG INJECTION 2 ML, 50MG A DAY
     Route: 065
     Dates: start: 20230910, end: 20230911

REACTIONS (1)
  - Hepatitis [Recovering/Resolving]

NARRATIVE: CASE EVENT DATE: 20230911
